FAERS Safety Report 8186862-3 (Version None)
Quarter: 2012Q1

REPORT INFORMATION
  Report Type: 
  Country: None (occurrence: None)
  Receive Date: 20120306
  Receipt Date: 20120229
  Transmission Date: 20120608
  Serious: Yes (Other)
  Sender: FDA-Public Use
  Company Number: JP-SP-2012-02456

PATIENT

DRUGS (1)
  1. IMMUCYST [Suspect]
     Indication: BLADDER CANCER
     Route: 065

REACTIONS (8)
  - ARTHRITIS [None]
  - MUSCULOSKELETAL PAIN [None]
  - MYALGIA [None]
  - BACK PAIN [None]
  - CONJUNCTIVITIS [None]
  - REITER'S SYNDROME [None]
  - HAEMATURIA [None]
  - PAIN IN EXTREMITY [None]
